FAERS Safety Report 12263709 (Version 1)
Quarter: 2016Q2

REPORT INFORMATION
  Report Type: Report from Study
  Country: FR (occurrence: FR)
  Receive Date: 20160413
  Receipt Date: 20160413
  Transmission Date: 20160815
  Serious: Yes (Hospitalization)
  Sender: FDA-Public Use
  Company Number: PHHO2015FR021206

PATIENT
  Age: 57 Year
  Sex: Male
  Weight: 83 kg

DRUGS (6)
  1. PAZOPANIB [Suspect]
     Active Substance: PAZOPANIB
     Dosage: 200 MG, QD
     Route: 048
     Dates: end: 20160203
  2. AMOXICILLIN. [Concomitant]
     Active Substance: AMOXICILLIN
     Indication: ESCHERICHIA INFECTION
  3. PAZOPANIB [Suspect]
     Active Substance: PAZOPANIB
     Indication: GLIOBLASTOMA MULTIFORME
     Dosage: 200 MG, QD
     Route: 048
     Dates: start: 20150914, end: 20151025
  4. TEMODAL [Concomitant]
     Active Substance: TEMOZOLOMIDE
     Indication: GLIOBLASTOMA MULTIFORME
     Dosage: 385 MG, QD (TOTAL DOSE 3375 MG)
     Route: 048
     Dates: start: 20150914, end: 20151016
  5. TEMODAL [Concomitant]
     Active Substance: TEMOZOLOMIDE
     Dosage: 370 MG, QD
     Route: 048
     Dates: end: 20160203
  6. AMOXICILLIN. [Concomitant]
     Active Substance: AMOXICILLIN
     Indication: URINARY TRACT INFECTION BACTERIAL
     Dosage: 1 G, TID
     Dates: end: 20151102

REACTIONS (3)
  - Aphasia [Recovered/Resolved]
  - Epilepsy [Not Recovered/Not Resolved]
  - Intracranial pressure increased [Recovered/Resolved]

NARRATIVE: CASE EVENT DATE: 20151022
